FAERS Safety Report 5378244-4 (Version None)
Quarter: 2007Q3

REPORT INFORMATION
  Report Type: 
  Country: None (occurrence: None)
  Receive Date: 20070705
  Receipt Date: 20070627
  Transmission Date: 20080115
  Serious: Yes (Other)
  Sender: FDA-Public Use
  Company Number: US-ASTRAZENECA-2007UW15199

PATIENT
  Age: 63 Year
  Sex: Female
  Weight: 71.3 kg

DRUGS (16)
  1. ARIMIDEX [Suspect]
     Indication: BREAST CANCER
     Route: 048
     Dates: start: 20050701, end: 20061113
  2. CELEXA [Concomitant]
     Indication: DEPRESSION
     Route: 048
  3. DURAGESIC-100 [Concomitant]
     Route: 061
  4. HYDROCODONE BITARTRATE [Concomitant]
     Dosage: 10/325
     Route: 048
  5. ACETAMINOPHEN [Concomitant]
     Indication: PAIN
     Route: 048
  6. KLONOPIN [Concomitant]
     Route: 048
  7. OXYCONTIN [Concomitant]
  8. ARIMIDEX [Concomitant]
     Route: 048
  9. PREMARIN [Concomitant]
     Indication: DEPRESSION
  10. PREVACID [Concomitant]
     Indication: GASTROOESOPHAGEAL REFLUX DISEASE
     Route: 048
  11. CLONAZEPAM [Concomitant]
     Indication: ANXIETY
  12. OXYCONTIN [Concomitant]
     Indication: FIBROMYALGIA
     Route: 048
  13. REMERON [Concomitant]
     Route: 048
  14. VITAMIN CAP [Concomitant]
     Route: 048
  15. CALCIUM CHLORIDE [Concomitant]
     Route: 048
  16. ADVIL LIQUI-GELS [Concomitant]

REACTIONS (5)
  - ARTHRALGIA [None]
  - CONSTIPATION [None]
  - FATIGUE [None]
  - HOT FLUSH [None]
  - NIGHT BLINDNESS [None]
